FAERS Safety Report 19577834 (Version 2)
Quarter: 2021Q3

REPORT INFORMATION
  Report Type: Spontaneous
  Country: US (occurrence: US)
  Receive Date: 20210719
  Receipt Date: 20210726
  Transmission Date: 20211014
  Serious: Yes (Other)
  Sender: FDA-Public Use
  Company Number: US-SAMSUNG BIOEPIS-SB-2021-17443

PATIENT
  Age: 59 Year
  Sex: Male

DRUGS (16)
  1. TRASTUZUMAB. [Suspect]
     Active Substance: TRASTUZUMAB
     Indication: COLORECTAL CANCER METASTATIC
     Dosage: LOADING DOSE
     Route: 042
     Dates: start: 201812
  2. TRASTUZUMAB. [Suspect]
     Active Substance: TRASTUZUMAB
     Dosage: 13 CYCLES
     Route: 042
  3. TRASTUZUMAB. [Suspect]
     Active Substance: TRASTUZUMAB
     Route: 042
     Dates: start: 202006, end: 202010
  4. LAPATINIB [Suspect]
     Active Substance: LAPATINIB
     Indication: COLORECTAL CANCER METASTATIC
     Route: 048
     Dates: start: 201812
  5. FOLINIC ACID [Suspect]
     Active Substance: LEUCOVORIN
     Dosage: UNKNOWN, 6 CYCLES
     Route: 065
  6. OXALIPLATIN. [Suspect]
     Active Substance: OXALIPLATIN
     Indication: COLORECTAL CANCER METASTATIC
     Dosage: UNKNOWN
     Route: 065
     Dates: start: 201707, end: 201711
  7. 5?FU [Suspect]
     Active Substance: FLUOROURACIL
     Indication: COLORECTAL CANCER METASTATIC
     Dosage: UNKNOWN
     Route: 065
     Dates: start: 201707, end: 201711
  8. 5?FU [Suspect]
     Active Substance: FLUOROURACIL
     Dosage: UNKNOWN
     Route: 065
     Dates: start: 201909, end: 202003
  9. FOLINIC ACID [Suspect]
     Active Substance: LEUCOVORIN
     Dosage: UNKNOWN
     Route: 065
     Dates: start: 201909, end: 202003
  10. FOLINIC ACID [Suspect]
     Active Substance: LEUCOVORIN
     Indication: COLORECTAL CANCER METASTATIC
     Dosage: UNKNOWN
     Route: 065
     Dates: start: 201707, end: 201711
  11. OXALIPLATIN. [Suspect]
     Active Substance: OXALIPLATIN
     Dosage: UNKNOWN
     Route: 065
     Dates: start: 201909, end: 202003
  12. BEVACIZUMAB. [Suspect]
     Active Substance: BEVACIZUMAB
     Dosage: UNKNOWN
     Route: 065
     Dates: start: 201909, end: 202003
  13. 5?FU [Suspect]
     Active Substance: FLUOROURACIL
     Dosage: UNKNOWN, 6 CYCLES
     Route: 065
  14. TRASTUZUMAB. [Suspect]
     Active Substance: TRASTUZUMAB
     Route: 042
     Dates: start: 202004, end: 202006
  15. BEVACIZUMAB. [Suspect]
     Active Substance: BEVACIZUMAB
     Indication: COLORECTAL CANCER METASTATIC
     Dosage: UNKNOWN
     Route: 065
     Dates: start: 201707, end: 201711
  16. PERTUZUMAB. [Suspect]
     Active Substance: PERTUZUMAB
     Indication: COLORECTAL CANCER METASTATIC
     Dosage: UNKNOWN, 3 CYCLES
     Route: 065
     Dates: start: 202004, end: 202006

REACTIONS (4)
  - Disease progression [Recovering/Resolving]
  - Metastases to lymph nodes [Unknown]
  - Metastases to liver [Unknown]
  - Off label use [Unknown]

NARRATIVE: CASE EVENT DATE: 201908
